FAERS Safety Report 25200898 (Version 3)
Quarter: 2025Q3

REPORT INFORMATION
  Report Type: Spontaneous
  Country: US (occurrence: US)
  Receive Date: 20250415
  Receipt Date: 20250816
  Transmission Date: 20251021
  Serious: Yes (Other)
  Sender: ALEXION PHARMACEUTICALS
  Company Number: US-ASTRAZENECA-202504USA007574US

PATIENT
  Age: 12 Year
  Sex: Male

DRUGS (1)
  1. STRENSIQ [Suspect]
     Active Substance: ASFOTASE ALFA
     Route: 065

REACTIONS (10)
  - Lipodystrophy acquired [Unknown]
  - Lipohypertrophy [Unknown]
  - Short stature [Unknown]
  - Tooth loss [Unknown]
  - Gait disturbance [Unknown]
  - Elbow deformity [Unknown]
  - Bone density decreased [Unknown]
  - Limb asymmetry [Unknown]
  - Tooth disorder [Unknown]
  - Scoliosis [Unknown]
